FAERS Safety Report 9055301 (Version 1)
Quarter: 2013Q1

REPORT INFORMATION
  Report Type: Spontaneous
  Country: DE (occurrence: DE)
  Receive Date: 20130209
  Receipt Date: 20130209
  Transmission Date: 20140127
  Serious: Yes (Other)
  Sender: FDA-Public Use
  Company Number: DE-TEVA-384855GER

PATIENT
  Age: 72 Year
  Sex: Male

DRUGS (1)
  1. SIMVASTATIN [Suspect]
     Dates: start: 2011

REACTIONS (4)
  - Lenticular opacities [Unknown]
  - Cataract operation [Unknown]
  - Transient ischaemic attack [Unknown]
  - Visual impairment [Unknown]
